FAERS Safety Report 11389780 (Version 2)
Quarter: 2015Q3

REPORT INFORMATION
  Report Type: Report from Study
  Country: US (occurrence: US)
  Receive Date: 20150817
  Receipt Date: 20150903
  Transmission Date: 20151125
  Serious: Yes (Other)
  Sender: FDA-Public Use
  Company Number: US-AMGEN-USASP2015081898

PATIENT
  Age: 71 Year
  Sex: Female

DRUGS (15)
  1. ENBREL [Suspect]
     Active Substance: ETANERCEPT
     Indication: RHEUMATOID ARTHRITIS
     Dosage: 50 MG, QWK
     Route: 065
     Dates: start: 201504, end: 201507
  2. AMLODIPINE [Concomitant]
     Active Substance: AMLODIPINE BESYLATE
  3. FOLIC ACID. [Concomitant]
     Active Substance: FOLIC ACID
  4. PLAQUENIL [Concomitant]
     Active Substance: HYDROXYCHLOROQUINE SULFATE
     Dosage: UNK
  5. FUROSEMIDE. [Concomitant]
     Active Substance: FUROSEMIDE
     Dosage: UNK
  6. PLAVIX [Concomitant]
     Active Substance: CLOPIDOGREL BISULFATE
  7. ALPRAZOLAM. [Concomitant]
     Active Substance: ALPRAZOLAM
  8. IRBESARTAN. [Concomitant]
     Active Substance: IRBESARTAN
  9. BUPROPION. [Concomitant]
     Active Substance: BUPROPION
  10. LEVOXYL [Concomitant]
     Active Substance: LEVOTHYROXINE SODIUM
  11. POTASSIUM [Concomitant]
     Active Substance: POTASSIUM
  12. VITAMIN D                          /00107901/ [Concomitant]
     Active Substance: ERGOCALCIFEROL
     Dosage: 2000 UNIT, UNK
  13. BACLOFEN. [Concomitant]
     Active Substance: BACLOFEN
  14. PRAMIPEXOLE. [Concomitant]
     Active Substance: PRAMIPEXOLE
  15. GABAPENTIN. [Concomitant]
     Active Substance: GABAPENTIN

REACTIONS (8)
  - Musculoskeletal pain [Unknown]
  - Skin exfoliation [Unknown]
  - Dry skin [Unknown]
  - Rash macular [Unknown]
  - Arterial occlusive disease [Unknown]
  - Condition aggravated [Unknown]
  - Skin ulcer [Unknown]
  - Skin discolouration [Unknown]

NARRATIVE: CASE EVENT DATE: 2015
